FAERS Safety Report 8998397 (Version 1)
Quarter: 2013Q1

REPORT INFORMATION
  Report Type: Spontaneous
  Country: IQ (occurrence: IQ)
  Receive Date: 20130103
  Receipt Date: 20130103
  Transmission Date: 20140127
  Serious: Yes (Other)
  Sender: FDA-Public Use
  Company Number: IQ-PFIZER INC-2012334254

PATIENT
  Age: 65 Year
  Sex: Female

DRUGS (4)
  1. AMLODIPINE BESILATE [Suspect]
     Indication: BLOOD PRESSURE
     Dosage: 5 MG DAILY
  2. FUROSEMIDE [Suspect]
     Indication: BLOOD PRESSURE
     Dosage: 20 MG, 2X/DAY
  3. CIPROFLOXACIN [Suspect]
     Indication: GASTROINTESTINAL INFECTION
     Dosage: 200 MG, 2X/DAY
     Route: 042
  4. DICLOFENAC [Suspect]
     Dosage: 75 MG, 2X/DAY

REACTIONS (1)
  - Stevens-Johnson syndrome [Unknown]
